FAERS Safety Report 10673926 (Version 1)
Quarter: 2014Q4

REPORT INFORMATION
  Report Type: Spontaneous
  Country: US (occurrence: None)
  Receive Date: 20141222
  Receipt Date: 20141222
  Transmission Date: 20150529
  Serious: Yes (Disabling, Other)
  Sender: FDA-Public Use
  Company Number: 2014-20952

PATIENT
  Sex: Female
  Weight: 68.5 kg

DRUGS (1)
  1. EYLEA [Suspect]
     Active Substance: AFLIBERCEPT
     Indication: EYE HAEMORRHAGE
     Dosage: 3-4 MONTHS IN LEFT EYE, INTRAOCULAR
     Route: 031
     Dates: start: 2013

REACTIONS (5)
  - Renal cancer [None]
  - Visual field defect [None]
  - Blindness unilateral [None]
  - Off label use [None]
  - Eye haemorrhage [None]
